FAERS Safety Report 23456253 (Version 2)
Quarter: 2024Q1

REPORT INFORMATION
  Report Type: Spontaneous
  Country: CA (occurrence: None)
  Receive Date: 20240130
  Receipt Date: 20240206
  Transmission Date: 20240410
  Serious: Yes (Other)
  Sender: FDA-Public Use
  Company Number: CA-PFIZER INC-202400025258

PATIENT
  Age: 78 Year
  Sex: Male

DRUGS (5)
  1. METHOTREXATE [Suspect]
     Active Substance: METHOTREXATE
     Indication: Uveitis
     Dosage: 1 DF, UNKNOWN DOSE AND STATUS  (FAILED)
  2. METHOTREXATE [Suspect]
     Active Substance: METHOTREXATE
  3. HADLIMA [Suspect]
     Active Substance: ADALIMUMAB-BWWD
     Indication: Uveitis
     Dosage: UNK (FAILED)
  4. PREDNISONE [Suspect]
     Active Substance: PREDNISONE
     Indication: Uveitis
     Dosage: UNK (FAILED)
  5. RINVOQ [Suspect]
     Active Substance: UPADACITINIB
     Indication: Uveitis
     Dosage: UNK (FAILED)

REACTIONS (4)
  - Blindness [Unknown]
  - Drug ineffective for unapproved indication [Unknown]
  - Product use in unapproved indication [Unknown]
  - Gastrointestinal disorder [Unknown]
